FAERS Safety Report 11915957 (Version 2)
Quarter: 2016Q1

REPORT INFORMATION
  Report Type: Report from Study
  Country: US (occurrence: US)
  Receive Date: 20160114
  Receipt Date: 20160226
  Transmission Date: 20160526
  Serious: Yes (Other)
  Sender: FDA-Public Use
  Company Number: US-AMGEN-USASL2016002707

PATIENT
  Age: 61 Year
  Sex: Female

DRUGS (1)
  1. ENBREL [Suspect]
     Active Substance: ETANERCEPT
     Indication: RHEUMATOID ARTHRITIS
     Dosage: 50 MG, QWK
     Route: 065

REACTIONS (10)
  - Nerve compression [Unknown]
  - Spinal fusion surgery [Unknown]
  - Upper limb fracture [Recovering/Resolving]
  - Bone disorder [Not Recovered/Not Resolved]
  - Spondylolisthesis [Unknown]
  - Fall [Unknown]
  - Hypersensitivity [Unknown]
  - Tendon rupture [Recovering/Resolving]
  - Post procedural infection [Unknown]
  - Pain [Recovered/Resolved]
